FAERS Safety Report 16251336 (Version 1)
Quarter: 2019Q2

REPORT INFORMATION
  Report Type: Spontaneous
  Country: US (occurrence: US)
  Receive Date: 20190429
  Receipt Date: 20190429
  Transmission Date: 20190711
  Serious: No
  Sender: FDA-Public Use
  Company Number: US-TEVA-2019-US-1041727

PATIENT
  Sex: Female

DRUGS (2)
  1. CLONAZEPAM TEVA TABLETS [Suspect]
     Active Substance: CLONAZEPAM
     Indication: MUSCLE TIGHTNESS
     Route: 065
     Dates: start: 1992
  2. TYELENOL [Concomitant]
     Route: 065

REACTIONS (1)
  - Rosacea [Unknown]
